FAERS Safety Report 11747150 (Version 2)
Quarter: 2015Q4

REPORT INFORMATION
  Report Type: Spontaneous
  Country: NL (occurrence: NL)
  Receive Date: 20151117
  Receipt Date: 20151221
  Transmission Date: 20160304
  Serious: Yes (Other)
  Sender: FDA-Public Use
  Company Number: CHPA2015NL013428

PATIENT
  Sex: Male

DRUGS (2)
  1. OTRIVIN [Suspect]
     Active Substance: XYLOMETAZOLINE
     Indication: PRODUCT USED FOR UNKNOWN INDICATION
     Dosage: 1 MG/ML, UNK
     Route: 045
  2. OTRIVIN [Suspect]
     Active Substance: XYLOMETAZOLINE
     Dosage: 1 MG/ML, UNK
     Route: 045

REACTIONS (1)
  - Drug dependence [Unknown]
